FAERS Safety Report 7788394-0 (Version None)
Quarter: 2011Q3

REPORT INFORMATION
  Report Type: 
  Country: None (occurrence: None)
  Receive Date: 20110928
  Receipt Date: 20110913
  Transmission Date: 20111222
  Serious: Yes (Other)
  Sender: FDA-Public Use
  Company Number: 2011AP002047

PATIENT
  Age: 19 Year
  Sex: Female

DRUGS (7)
  1. CITALOPRAM HYDROBROMIDE [Suspect]
     Indication: DEPRESSION
     Dosage: 20; 10  MG
     Dates: start: 20110201, end: 20110712
  2. CITALOPRAM HYDROBROMIDE [Suspect]
     Indication: DEPRESSION
     Dosage: 20; 10  MG
     Dates: start: 20110712
  3. CITALOPRAM HYDROBROMIDE [Suspect]
  4. AMOXICILLIN AND CLAVULANATE POTASSIUM [Concomitant]
  5. ACETAMINOPHEN W/ CODEINE [Concomitant]
  6. MULTIVITAMIN [Concomitant]
  7. ACETAMINOPHEN W/ CODEINE [Concomitant]

REACTIONS (6)
  - LETHARGY [None]
  - AGITATION [None]
  - EMOTIONAL DISORDER [None]
  - PSYCHOMOTOR HYPERACTIVITY [None]
  - PRODUCT SUBSTITUTION ISSUE [None]
  - MANIA [None]
